FAERS Safety Report 23915856 (Version 1)
Quarter: 2024Q2

REPORT INFORMATION
  Report Type: Spontaneous
  Country: HU (occurrence: HU)
  Receive Date: 20240529
  Receipt Date: 20240529
  Transmission Date: 20240716
  Serious: Yes (Death, Other)
  Sender: FDA-Public Use
  Company Number: HU-Merck Healthcare KGaA-2024027097

PATIENT
  Age: 59 Year
  Sex: Male

DRUGS (8)
  1. ERBITUX [Suspect]
     Active Substance: CETUXIMAB
     Indication: Metastases to pharynx
     Dosage: UNK UNK, UNKNOWN
     Route: 065
     Dates: start: 20180821, end: 20181012
  2. TALTZ [Suspect]
     Active Substance: IXEKIZUMAB
     Indication: Psoriasis
     Dosage: 80 MG, UNKNOWN
     Route: 065
     Dates: start: 201708, end: 201807
  3. AMLODIPINE BESYLATE\PERINDOPRIL ARGININE [Concomitant]
     Active Substance: AMLODIPINE BESYLATE\PERINDOPRIL ARGININE
     Indication: Hypertension
  4. ACITRETIN [Concomitant]
     Active Substance: ACITRETIN
     Indication: Phototherapy
     Dates: start: 201009
  5. ACITRETIN [Concomitant]
     Active Substance: ACITRETIN
     Dates: start: 20090104
  6. ACITRETIN [Concomitant]
     Active Substance: ACITRETIN
     Dates: start: 201108
  7. ACITRETIN [Concomitant]
     Active Substance: ACITRETIN
     Dates: start: 20090404
  8. ACITRETIN [Concomitant]
     Active Substance: ACITRETIN
     Dates: start: 201701, end: 201705

REACTIONS (1)
  - Malignant neoplasm progression [Fatal]

NARRATIVE: CASE EVENT DATE: 20180801
